FAERS Safety Report 11675011 (Version 1)
Quarter: 2015Q4

REPORT INFORMATION
  Report Type: Report from Study
  Country: FR (occurrence: FR)
  Receive Date: 20151028
  Receipt Date: 20151028
  Transmission Date: 20160304
  Serious: Yes (Other)
  Sender: FDA-Public Use
  Company Number: FR-BAYER-2015-446921

PATIENT
  Age: 44 Year
  Sex: Male
  Weight: 69 kg

DRUGS (2)
  1. REGORAFENIB [Suspect]
     Active Substance: REGORAFENIB
     Indication: BONE SARCOMA
     Dosage: 160 MG DAILY
     Route: 048
     Dates: start: 20150916, end: 20151016
  2. PLACEBO (16994) [Suspect]
     Active Substance: UNSPECIFIED INGREDIENT
     Dosage: 160 MG DAILY
     Route: 048
     Dates: start: 20150819, end: 20150908

REACTIONS (1)
  - Pneumothorax [Not Recovered/Not Resolved]

NARRATIVE: CASE EVENT DATE: 20151012
